FAERS Safety Report 9952889 (Version 1)
Quarter: 2014Q1

REPORT INFORMATION
  Report Type: Spontaneous
  Country: US (occurrence: US)
  Receive Date: 20140304
  Receipt Date: 20140304
  Transmission Date: 20141002
  Serious: No
  Sender: FDA-Public Use
  Company Number: US-ABBVIE-13P-163-1078934-00

PATIENT
  Age: 66 Year
  Sex: Female
  Weight: 81.27 kg

DRUGS (6)
  1. HUMIRA [Suspect]
     Indication: CROHN^S DISEASE
     Dates: start: 20120329, end: 20120329
  2. HUMIRA [Suspect]
     Dates: start: 20130412, end: 20130412
  3. METHOTREXATE [Suspect]
     Indication: CROHN^S DISEASE
     Dates: start: 201301
  4. BUSPAR [Concomitant]
     Indication: DEPRESSION
  5. BUSPAR [Concomitant]
     Indication: ANXIETY
  6. TOPROL [Concomitant]
     Indication: BLOOD PRESSURE

REACTIONS (1)
  - Swelling face [Not Recovered/Not Resolved]
